FAERS Safety Report 9542102 (Version 1)
Quarter: 2013Q3

REPORT INFORMATION
  Report Type: Spontaneous
  Country: GB (occurrence: None)
  Receive Date: 20130918
  Receipt Date: 20130918
  Transmission Date: 20140515
  Serious: Yes (Other)
  Sender: FDA-Public Use
  Company Number: AUR-APL-2013-07580

PATIENT
  Sex: Male

DRUGS (1)
  1. FLUOXETINE [Suspect]
     Indication: OBSESSIVE-COMPULSIVE DISORDER

REACTIONS (5)
  - Obsessive-compulsive disorder [None]
  - Condition aggravated [None]
  - Anxiety [None]
  - Product substitution issue [None]
  - Product quality issue [None]
